FAERS Safety Report 6564933-2 (Version None)
Quarter: 2010Q1

REPORT INFORMATION
  Report Type: 
  Country: None (occurrence: None)
  Receive Date: 20100201
  Receipt Date: 20091218
  Transmission Date: 20100710
  Serious: Yes (Death, Other)
  Sender: FDA-Public Use
  Company Number: US-BAXTER-2009BH011127

PATIENT
  Age: 56 Year
  Sex: Female
  Weight: 41 kg

DRUGS (17)
  1. HEPARIN SODIUM INJECTION [Suspect]
     Indication: VASCULAR GRAFT
     Route: 042
     Dates: start: 20070702
  2. AMIODARONE HCL [Concomitant]
     Indication: DRUG USE FOR UNKNOWN INDICATION
     Route: 065
  3. CALCIUM CHLORIDE [Concomitant]
     Indication: DRUG USE FOR UNKNOWN INDICATION
     Route: 065
  4. CEFAZOLIN [Concomitant]
     Indication: DRUG USE FOR UNKNOWN INDICATION
     Route: 065
  5. EPINEPHRINE [Concomitant]
     Indication: DRUG USE FOR UNKNOWN INDICATION
     Route: 065
  6. ETOMIDATE [Concomitant]
     Indication: DRUG USE FOR UNKNOWN INDICATION
     Route: 065
  7. FENTANYL [Concomitant]
     Indication: DRUG USE FOR UNKNOWN INDICATION
     Route: 065
  8. GLYCOPYRROLATE [Concomitant]
     Indication: DRUG USE FOR UNKNOWN INDICATION
     Route: 065
  9. MAGNESIUM SULFATE [Concomitant]
     Indication: DRUG USE FOR UNKNOWN INDICATION
     Route: 065
  10. MIDAZOLAM HCL [Concomitant]
     Indication: DRUG USE FOR UNKNOWN INDICATION
     Route: 065
  11. NEOSTIGMINE [Concomitant]
     Indication: DRUG USE FOR UNKNOWN INDICATION
     Route: 065
  12. PHENYTOIN [Concomitant]
     Indication: DRUG USE FOR UNKNOWN INDICATION
     Route: 065
  13. VECURONIUM BROMIDE [Concomitant]
     Indication: DRUG USE FOR UNKNOWN INDICATION
     Route: 065
  14. STERILE WATER FOR INJECTION IN PLASTIC CONTAINER [Concomitant]
     Indication: DRUG USE FOR UNKNOWN INDICATION
     Route: 065
  15. REGULAR INSULIN [Concomitant]
     Indication: DRUG USE FOR UNKNOWN INDICATION
     Route: 065
  16. ROCURONIUM [Concomitant]
     Indication: DRUG USE FOR UNKNOWN INDICATION
     Route: 065
  17. PROTAMINE SULFATE [Concomitant]
     Indication: DRUG USE FOR UNKNOWN INDICATION
     Route: 065

REACTIONS (28)
  - ABDOMINAL DISCOMFORT [None]
  - ABDOMINAL PAIN [None]
  - ABSCESS [None]
  - ARTERIAL OCCLUSIVE DISEASE [None]
  - CACHEXIA [None]
  - CHRONIC OBSTRUCTIVE PULMONARY DISEASE [None]
  - DECUBITUS ULCER [None]
  - DEEP VEIN THROMBOSIS [None]
  - EMPYEMA [None]
  - GASTROOESOPHAGEAL CANCER [None]
  - HAEMATOMA [None]
  - HAEMORRHAGE [None]
  - HEPATIC FAILURE [None]
  - HEPATIC STEATOSIS [None]
  - HYPERLIPIDAEMIA [None]
  - HYPERTENSION [None]
  - HYPOTENSION [None]
  - ILIAC ARTERY OCCLUSION [None]
  - INTESTINAL ISCHAEMIA [None]
  - NAUSEA [None]
  - PERIPHERAL VASCULAR DISORDER [None]
  - RENAL ARTERY OCCLUSION [None]
  - RENAL FAILURE CHRONIC [None]
  - RESPIRATORY DISTRESS [None]
  - RESPIRATORY FAILURE [None]
  - SEPSIS [None]
  - THIRST [None]
  - UNRESPONSIVE TO STIMULI [None]
